FAERS Safety Report 14758502 (Version 1)
Quarter: 2018Q2

REPORT INFORMATION
  Report Type: Report from Study
  Country: CA (occurrence: CA)
  Receive Date: 20180413
  Receipt Date: 20180413
  Transmission Date: 20180711
  Serious: Yes (Other)
  Sender: FDA-Public Use
  Company Number: CA-AMGEN-CANSL2018047559

PATIENT
  Age: 88 Year
  Sex: Female

DRUGS (3)
  1. PROLIA [Suspect]
     Active Substance: DENOSUMAB
     Indication: OSTEOPOROSIS
     Dosage: 60 MG/ML, UNK
     Route: 065
     Dates: start: 20120322
  2. VITAMIN D [Concomitant]
     Active Substance: CHOLECALCIFEROL
     Dosage: UNK
  3. CANNABIS [Suspect]
     Active Substance: CANNABIS SATIVA SUBSP. INDICA TOP
     Indication: PAIN
     Dosage: UNK
     Route: 065

REACTIONS (6)
  - Carcinoid tumour pulmonary [Unknown]
  - Joint swelling [Unknown]
  - Drug ineffective [Unknown]
  - Fall [Unknown]
  - Pain [Not Recovered/Not Resolved]
  - Cerebral disorder [Unknown]
